FAERS Safety Report 10164909 (Version 2)
Quarter: 2014Q2

REPORT INFORMATION
  Report Type: Spontaneous
  Country: US (occurrence: US)
  Receive Date: 20140510
  Receipt Date: 20140510
  Transmission Date: 20141212
  Serious: No
  Sender: FDA-Public Use
  Company Number: US-BRISTOL-MYERS SQUIBB COMPANY-20199782

PATIENT
  Age: 64 Year
  Sex: Female

DRUGS (2)
  1. BYDUREON [Suspect]
     Dates: start: 20140202
  2. METFORMIN HCL [Suspect]

REACTIONS (4)
  - Paraesthesia [Unknown]
  - Muscle spasms [Unknown]
  - Weight decreased [Unknown]
  - Sinusitis [Unknown]
